FAERS Safety Report 6262710-3 (Version None)
Quarter: 2009Q3

REPORT INFORMATION
  Report Type: 
  Country: None (occurrence: None)
  Receive Date: 20090708
  Receipt Date: 20090623
  Transmission Date: 20100115
  Serious: Yes (Other)
  Sender: FDA-Public Use
  Company Number: CIP09001683

PATIENT
  Age: 66 Year
  Sex: Female
  Weight: 53.5 kg

DRUGS (12)
  1. ACTONEL [Suspect]
     Indication: OSTEOPOROSIS
     Dosage: 5 MG DAILY, ORAL
     Route: 048
     Dates: start: 20040101
  2. ACTONEL [Suspect]
     Indication: OSTEOPOROSIS
     Dosage: 35 MG ONCE WEEKLY, ORAL
     Route: 048
     Dates: end: 20070803
  3. FOSAMAX [Suspect]
     Dates: start: 20001101
  4. FORTEO [Suspect]
     Dosage: INJECTION NOS
     Dates: start: 20070804
  5. BETMOL /0037120/ (TIMOLOL) [Concomitant]
  6. BABY ASPIRIN (AETYLSALICYLIC ACID) [Concomitant]
  7. GLUCOSAMINE (GLUCOSAMINE) [Concomitant]
  8. OMEGA 3 FISH OIL (FISH OIL) [Concomitant]
  9. MULTIVITAMIN /00831701/ (VITAMINS NOS) [Concomitant]
  10. VITAMIN B COMPLEX WC /00087501/ (ASCORBOC ACOD, CALCIUM PANTOTHENATE, [Concomitant]
  11. METAMUCIL REGULAR (PLANTAGO OVATA) [Concomitant]
  12. CALCIUM PLUS D3 (CALCIUM, COLECALCIFEROL) [Concomitant]

REACTIONS (7)
  - DENTAL NECROSIS [None]
  - GINGIVAL RECESSION [None]
  - JAW DISORDER [None]
  - LOOSE TOOTH [None]
  - PERIODONTITIS [None]
  - RESORPTION BONE INCREASED [None]
  - TOOTHACHE [None]
